FAERS Safety Report 6291490-0 (Version None)
Quarter: 2009Q3

REPORT INFORMATION
  Report Type: 
  Country: None (occurrence: None)
  Receive Date: 20090729
  Receipt Date: 20090729
  Transmission Date: 20100115
  Serious: Yes (Life-Threatening, Hospitalization)
  Sender: FDA-Public Use
  Company Number: None

PATIENT
  Sex: Female
  Weight: 57.1532 kg

DRUGS (3)
  1. BEVACIZUMAB 925 MG -15 MG/KG-GENENTECH [Suspect]
     Indication: NON-SMALL CELL LUNG CANCER METASTATIC
     Dosage: 15 MG/KG Q 3 WEEKS IV 6 CYCLES
     Route: 042
     Dates: start: 20090306, end: 20090626
  2. CARBOPLATIN [Concomitant]
  3. PACLITAXEL [Concomitant]

REACTIONS (5)
  - APPENDICITIS PERFORATED [None]
  - CONSTIPATION [None]
  - HEART RATE INCREASED [None]
  - INTESTINAL OBSTRUCTION [None]
  - PERITONITIS [None]
